FAERS Safety Report 11919287 (Version 1)
Quarter: 2016Q1

REPORT INFORMATION
  Report Type: Report from Study
  Country: CN (occurrence: CN)
  Receive Date: 20160115
  Receipt Date: 20160115
  Transmission Date: 20160526
  Serious: Yes (Other)
  Sender: FDA-Public Use
  Company Number: CN-ROCHE-1693020

PATIENT

DRUGS (6)
  1. FLUOROURACIL. [Suspect]
     Active Substance: FLUOROURACIL
     Indication: RECTAL ADENOCARCINOMA
     Dosage: 6-8 CYCLES
     Route: 040
  2. FLUOROURACIL. [Suspect]
     Active Substance: FLUOROURACIL
     Dosage: OVER 46-48 H
     Route: 042
  3. LEUCOVORIN. [Suspect]
     Active Substance: LEUCOVORIN
     Indication: RECTAL ADENOCARCINOMA
     Dosage: OVER 2 HOURS; 6-8 CYCLES,
     Route: 042
  4. CAPECITABINE. [Suspect]
     Active Substance: CAPECITABINE
     Indication: RECTAL ADENOCARCINOMA
     Dosage: DAY 1-14 AND DAY 22-25
     Route: 048
  5. OXALIPLATIN. [Suspect]
     Active Substance: OXALIPLATIN
     Indication: RECTAL ADENOCARCINOMA
     Dosage: 6-8 CYCLES, OVER 2 HOURS ON DAY 1, 8, 22 AND 29
     Route: 042
  6. OXALIPLATIN. [Suspect]
     Active Substance: OXALIPLATIN
     Dosage: OVER 2 HOURS ON DAY 1
     Route: 042

REACTIONS (8)
  - Anaemia [Unknown]
  - Dysuria [Unknown]
  - Abdominal pain [Unknown]
  - Nausea [Unknown]
  - Fatigue [Unknown]
  - Neurotoxicity [Unknown]
  - Diarrhoea [Unknown]
  - Pyrexia [Unknown]
